FAERS Safety Report 4582168-X (Version None)
Quarter: 2005Q1

REPORT INFORMATION
  Report Type: 
  Country: None (occurrence: None)
  Receive Date: 20050210
  Receipt Date: 20050128
  Transmission Date: 20050727
  Serious: Yes (Other)
  Sender: FDA-Public Use
  Company Number: 2005023645

PATIENT
  Age: 78 Year
  Sex: Female
  Weight: 58.9676 kg

DRUGS (12)
  1. CELEBREX [Suspect]
     Indication: ILL-DEFINED DISORDER
  2. ALENDRONATE SODIUM [Suspect]
     Indication: ILL-DEFINED DISORDER
  3. NEOSPORIN [Suspect]
     Indication: SCRATCH
  4. FUROSEMIDE [Concomitant]
  5. DIGOXIN [Concomitant]
  6. WARFARIN SODIUM [Concomitant]
  7. POTASSIUM CHLORIDE [Concomitant]
  8. CYANOCOBALAMIN (CYANOCOBALAMIN) [Concomitant]
  9. FISH OIL (FISH OIL) [Concomitant]
  10. IRON (IRON) [Concomitant]
  11. OCUVITE (ASCORBIC ACID, RETINOL, TOCOPHEROL) [Concomitant]
  12. AMOXICILLIN [Concomitant]

REACTIONS (9)
  - CARDIAC DISORDER [None]
  - CATARACT [None]
  - ERYTHEMA [None]
  - GASTRIC DISORDER [None]
  - LUNG DISORDER [None]
  - MUSCLE DISORDER [None]
  - NERVOUS SYSTEM DISORDER [None]
  - PULMONARY HYPERTENSION [None]
  - SKIN LACERATION [None]
